FAERS Safety Report 13628116 (Version 1)
Quarter: 2017Q2

REPORT INFORMATION
  Report Type: Report from Study
  Country: EG (occurrence: EG)
  Receive Date: 20170608
  Receipt Date: 20170608
  Transmission Date: 20170830
  Serious: Yes (Hospitalization)
  Sender: FDA-Public Use
  Company Number: EG-NOVOPROD-548675

PATIENT
  Sex: Female

DRUGS (6)
  1. MIXTARD 30 HM PENFILL [Suspect]
     Active Substance: INSULIN HUMAN
     Indication: TYPE 2 DIABETES MELLITUS
     Dosage: 120 IU, QD (80 IU AND 40 IU)
     Route: 058
     Dates: start: 2000
  2. SOVALDI [Concomitant]
     Active Substance: SOFOSBUVIR
     Dosage: UNK
     Route: 048
     Dates: start: 201606, end: 201612
  3. ACAPRIL [Concomitant]
     Dosage: UNK
     Route: 048
  4. URSOPLUS [Concomitant]
     Dosage: UNK
     Route: 048
  5. INTERFERON [Concomitant]
     Active Substance: INTERFERON
     Dosage: UNK
     Route: 058
     Dates: start: 2007, end: 2007
  6. MILGA [Concomitant]
     Dosage: UNK
     Route: 048

REACTIONS (1)
  - Diabetic hyperglycaemic coma [Recovering/Resolving]

NARRATIVE: CASE EVENT DATE: 20170513
